FAERS Safety Report 23916927 (Version 1)
Quarter: 2024Q2

REPORT INFORMATION
  Report Type: Spontaneous
  Country: GB (occurrence: GB)
  Receive Date: 20240529
  Receipt Date: 20240529
  Transmission Date: 20240716
  Serious: Yes (Hospitalization)
  Sender: FDA-Public Use
  Company Number: GB-MYLANLABS-2024M1035985

PATIENT
  Age: 35 Year
  Sex: Female

DRUGS (19)
  1. CLOZARIL [Suspect]
     Active Substance: CLOZAPINE
     Indication: Schizophrenia
     Dosage: 50 MILLIGRAM, AM
     Route: 048
     Dates: start: 20210326
  2. CLOZARIL [Suspect]
     Active Substance: CLOZAPINE
     Dosage: 450 MILLIGRAM, PM
     Route: 048
     Dates: start: 20210326
  3. VITAMINS [Concomitant]
     Active Substance: VITAMINS
     Dosage: 1 DOSAGE FORM, QD (1 TABLET OD)
     Route: 048
  4. BECLOMETHASONE DIPROPIONATE [Concomitant]
     Active Substance: BECLOMETHASONE DIPROPIONATE
     Dosage: 1 PUFF, BID (1 PUFF, BD)
     Route: 055
  5. ALBUTEROL [Concomitant]
     Active Substance: ALBUTEROL
     Dosage: 2 PUFFS QDS PRN
     Route: 055
  6. PEPPERMINT [Concomitant]
     Active Substance: PEPPERMINT
     Dosage: 1 MODIFIED RELEASE, BID (1 CAPSULE, BD)
     Route: 048
  7. HALOPERIDOL DECANOATE [Concomitant]
     Active Substance: HALOPERIDOL DECANOATE
     Dosage: 5 MILLIGRAM, QD
     Route: 048
     Dates: start: 20240104, end: 20240410
  8. SENNA [Concomitant]
     Active Substance: SENNA LEAF\SENNOSIDES\SENNOSIDES A AND B
     Dosage: 15 MILLIGRAM, PM (ON)
     Route: 048
  9. PROPRANOLOL [Concomitant]
     Active Substance: PROPRANOLOL HYDROCHLORIDE
     Dosage: 80 MILLIGRAM, BID
     Route: 048
  10. PROMETHAZINE [Concomitant]
     Active Substance: PROMETHAZINE HYDROCHLORIDE
     Dosage: 25 MILLIGRAM, QD
     Route: 048
  11. MEBEVERINE [Concomitant]
     Active Substance: MEBEVERINE
     Dosage: 135 MILLIGRAM, TID
     Route: 048
  12. POLYETHYLENE GLYCOLS [Concomitant]
     Active Substance: POLYETHYLENE GLYCOLS
     Dosage: 1 DOSAGE FORM, BID (1 SACHET BD)
     Route: 048
     Dates: start: 20240104, end: 20240410
  13. LANSOPRAZOLE [Concomitant]
     Active Substance: LANSOPRAZOLE
     Dosage: 30 MILLIGRAM, AM (OM)
     Route: 048
  14. LAMOTRIGINE [Concomitant]
     Active Substance: LAMOTRIGINE
     Dosage: 50 MILLIGRAM, PM (ON)
     Route: 048
     Dates: start: 20240104, end: 20240410
  15. SCOPOLAMINE HYDROBROMIDE [Concomitant]
     Active Substance: SCOPOLAMINE HYDROBROMIDE
     Dosage: 300 MICROGRAM, TID
     Route: 048
  16. DIAZEPAM [Concomitant]
     Active Substance: DIAZEPAM
     Dosage: 2 MILLIGRAM, BID
     Route: 048
     Dates: start: 20240104, end: 20240410
  17. CETIRIZINE [Concomitant]
     Active Substance: CETIRIZINE HYDROCHLORIDE
     Dosage: 10 MILLIGRAM, QD
     Route: 048
  18. ATORVASTATIN [Concomitant]
     Active Substance: ATORVASTATIN
     Dosage: 10 MILLIGRAM, PM (ON)
     Route: 048
  19. AMITRIPTYLINE [Concomitant]
     Active Substance: AMITRIPTYLINE
     Dosage: 30 MILLIGRAM, PM (ON)
     Route: 048
     Dates: start: 20240104, end: 20240410

REACTIONS (2)
  - Mental impairment [Recovered/Resolved]
  - Treatment noncompliance [Recovered/Resolved]

NARRATIVE: CASE EVENT DATE: 20240104
